FAERS Safety Report 25587980 (Version 3)
Quarter: 2025Q3

REPORT INFORMATION
  Report Type: Spontaneous
  Country: US (occurrence: US)
  Receive Date: 20250721
  Receipt Date: 20250903
  Transmission Date: 20251020
  Serious: Yes (Other)
  Sender: AMGEN
  Company Number: US-AMGEN-USASP2025140120

PATIENT
  Age: 60 Year
  Sex: Male
  Weight: 61.4 kg

DRUGS (31)
  1. TEPEZZA [Suspect]
     Active Substance: TEPROTUMUMAB-TRBW
     Indication: Endocrine ophthalmopathy
     Dosage: 738 MILLIGRAM, Q3WK, (FIRST INFUSION)
     Route: 040
     Dates: start: 20210901
  2. TEPEZZA [Suspect]
     Active Substance: TEPROTUMUMAB-TRBW
     Indication: Graves^ disease
     Dosage: 1476 MILLIGRAM, Q3WK, (SECOND INFUSION)
     Route: 040
     Dates: start: 20210923
  3. TEPEZZA [Suspect]
     Active Substance: TEPROTUMUMAB-TRBW
     Dosage: 1424 MILLIGRAM, Q3WK, (THIRD INFUSION)
     Route: 040
     Dates: start: 20211014
  4. TEPEZZA [Suspect]
     Active Substance: TEPROTUMUMAB-TRBW
     Dosage: 1360 MILLIGRAM, Q3WK, (UNKNOWN INFUSION)
     Route: 040
     Dates: start: 20211112
  5. TEPEZZA [Suspect]
     Active Substance: TEPROTUMUMAB-TRBW
     Dosage: 1360 MILLIGRAM, Q3WK, (UNKNOWN INFUSION)
     Route: 040
     Dates: start: 20211203
  6. TEPEZZA [Suspect]
     Active Substance: TEPROTUMUMAB-TRBW
     Dosage: 1398 MILLIGRAM, Q3WK, (UNKNOWN INFUSION)
     Route: 040
     Dates: start: 20211227
  7. PREDNISONE [Suspect]
     Active Substance: PREDNISONE
     Indication: Product used for unknown indication
     Dosage: 20 MILLIGRAM, QD
     Route: 048
  8. ASPIRIN [Concomitant]
     Active Substance: ASPIRIN
  9. METHIMAZOLE [Concomitant]
     Active Substance: METHIMAZOLE
     Dosage: 10 MILLIGRAM, QD
     Route: 048
  10. INFLUENZA VIRUS VACCINE [Concomitant]
     Active Substance: INFLUENZA VIRUS VACCINE
     Route: 030
     Dates: start: 20220919
  11. PREVNAR 20 [Concomitant]
     Active Substance: PNEUMOCOCCAL 20-VALENT CONJUGATE VACCINE
     Route: 030
  12. CYCLOBENZAPRINE HYDROCHLORIDE [Concomitant]
     Active Substance: CYCLOBENZAPRINE HYDROCHLORIDE
     Dosage: 10 MILLIGRAM, QD
     Route: 048
  13. ANORO ELLIPTA [Concomitant]
     Active Substance: UMECLIDINIUM BROMIDE\VILANTEROL TRIFENATATE
     Dosage: UNK UNK, QD
     Dates: start: 20220919
  14. LEVOTHYROXINE SODIUM [Concomitant]
     Active Substance: LEVOTHYROXINE SODIUM
     Dosage: 26 MICROGRAM, QD
     Route: 048
  15. LEVOTHYROXINE SODIUM [Concomitant]
     Active Substance: LEVOTHYROXINE SODIUM
     Dosage: 125 MICROGRAM, QD
     Route: 048
  16. LEVOTHYROXINE SODIUM [Concomitant]
     Active Substance: LEVOTHYROXINE SODIUM
     Dosage: 137 MICROGRAM, QD
     Route: 048
  17. TAMSULOSIN HYDROCHLORIDE [Concomitant]
     Active Substance: TAMSULOSIN HYDROCHLORIDE
     Dosage: 0.4 MILLIGRAM, QD
     Route: 048
     Dates: start: 20220919
  18. ACETAMINOPHEN\HYDROCODONE [Concomitant]
     Active Substance: ACETAMINOPHEN\HYDROCODONE
     Dosage: 325 MILLIGRAM, Q6H
     Route: 048
  19. IBUPROFEN [Concomitant]
     Active Substance: IBUPROFEN
     Indication: Pain
     Dosage: 800 MILLIGRAM, Q6H
     Route: 048
  20. LEVOTHYROXINE [Concomitant]
     Active Substance: LEVOTHYROXINE
     Dosage: 125 MICROGRAM, QD
     Route: 048
  21. ROSUVASTATIN [Concomitant]
     Active Substance: ROSUVASTATIN
     Route: 048
  22. TRIAMCINOLONE ACETONIDE [Concomitant]
     Active Substance: TRIAMCINOLONE ACETONIDE
     Dosage: UNK, BID
     Route: 061
  23. ROSUVASTATIN CALCIUM [Concomitant]
     Active Substance: ROSUVASTATIN CALCIUM
     Dosage: 10 MILLIGRAM, QD
     Route: 048
  24. ROSUVASTATIN CALCIUM [Concomitant]
     Active Substance: ROSUVASTATIN CALCIUM
     Dosage: 20 MILLIGRAM, QD
     Route: 048
  25. VITAMIN D [Concomitant]
     Active Substance: VITAMIN D NOS
     Dosage: 25 MICROGRAM, QD
     Route: 048
  26. VITAMIN D [Concomitant]
     Active Substance: VITAMIN D NOS
     Dosage: 50 MICROGRAM, QD
     Route: 048
  27. MIRTAZAPINE [Concomitant]
     Active Substance: MIRTAZAPINE
     Route: 065
  28. SHINGRIX [Concomitant]
     Active Substance: RECOMBINANT VARICELLA ZOSTER VIRUS (VZV) GLYCOPROTEIN E
     Route: 065
     Dates: start: 20220920
  29. SODIUM CHLORIDE [Concomitant]
     Active Substance: SODIUM CHLORIDE
     Route: 065
  30. SILDENAFIL CITRATE [Concomitant]
     Active Substance: SILDENAFIL CITRATE
     Dosage: 25 MILLIGRAM, QD
     Route: 048
  31. ALBUTEROL SULFATE [Concomitant]
     Active Substance: ALBUTEROL SULFATE
     Dosage: UNK UNK, Q4H
     Route: 065

REACTIONS (60)
  - Endocrine ophthalmopathy [Unknown]
  - Graves^ disease [Unknown]
  - Syncope [Unknown]
  - Major depression [Unknown]
  - Urinary retention [Unknown]
  - Deafness permanent [Not Recovered/Not Resolved]
  - Pain [Unknown]
  - Emotional distress [Unknown]
  - Impaired quality of life [Unknown]
  - Anxiety [Unknown]
  - Discomfort [Unknown]
  - Weight decreased [Recovering/Resolving]
  - Tinnitus [Not Recovered/Not Resolved]
  - Product communication issue [Unknown]
  - Stress [Unknown]
  - Emphysema [Unknown]
  - Vitiligo [Unknown]
  - Pruritus [Unknown]
  - Bronchitis bacterial [Unknown]
  - Benign prostatic hyperplasia [Unknown]
  - Dermatitis [Unknown]
  - Idiopathic guttate hypomelanosis [Unknown]
  - Dysphonia [Unknown]
  - Sinus congestion [Unknown]
  - Nasal congestion [Unknown]
  - Nasopharyngitis [Unknown]
  - Decreased appetite [Unknown]
  - Abdominal pain [Unknown]
  - Seasonal allergy [Unknown]
  - Rheumatic disorder [Unknown]
  - Chronic obstructive pulmonary disease [Unknown]
  - Skin ulcer [Unknown]
  - Wound [Unknown]
  - Vitamin D deficiency [Unknown]
  - Blood glucose decreased [Unknown]
  - Post procedural hypothyroidism [Unknown]
  - Psychophysiologic insomnia [Unknown]
  - Skin exfoliation [Unknown]
  - Otitis media acute [Unknown]
  - Tooth extraction [Unknown]
  - Thyroid mass [Unknown]
  - Hypersensitivity [Unknown]
  - Tri-iodothyronine free increased [Unknown]
  - Blood sodium increased [Unknown]
  - Eosinophil count increased [Unknown]
  - Tri-iodothyronine free decreased [Unknown]
  - Blood urea nitrogen/creatinine ratio decreased [Unknown]
  - Lymphocyte count increased [Unknown]
  - Monocyte count increased [Unknown]
  - Mean cell haemoglobin decreased [Unknown]
  - Blood alkaline phosphatase increased [Unknown]
  - Thyroxine free increased [Unknown]
  - Ear pain [Unknown]
  - Rash [Unknown]
  - Asthenia [Unknown]
  - Taste disorder [Unknown]
  - Fatigue [Unknown]
  - Nausea [Unknown]
  - Headache [Unknown]
  - Blood glucose increased [Unknown]

NARRATIVE: CASE EVENT DATE: 20211217
